FAERS Safety Report 6600449-2 (Version None)
Quarter: 2010Q1

REPORT INFORMATION
  Report Type: 
  Country: None (occurrence: None)
  Receive Date: 20100223
  Receipt Date: 20100223
  Transmission Date: 20100710
  Serious: No
  Sender: FDA-Public Use
  Company Number: None

PATIENT
  Age: 43 Year
  Sex: Female
  Weight: 69.4003 kg

DRUGS (1)
  1. LEVAQUIN [Suspect]
     Indication: UPPER RESPIRATORY TRACT INFECTION
     Dosage: 1/DAY PO
     Route: 048

REACTIONS (10)
  - ABNORMAL BEHAVIOUR [None]
  - ARTHRALGIA [None]
  - BRONCHITIS [None]
  - FATIGUE [None]
  - MUSCULOSKELETAL STIFFNESS [None]
  - MYALGIA [None]
  - NECK PAIN [None]
  - PYREXIA [None]
  - TENDERNESS [None]
  - TENDONITIS [None]
